FAERS Safety Report 12320370 (Version 1)
Quarter: 2016Q2

REPORT INFORMATION
  Report Type: Report from Study
  Country: US (occurrence: US)
  Receive Date: 20160429
  Receipt Date: 20160429
  Transmission Date: 20160815
  Serious: Yes (Hospitalization, Other)
  Sender: FDA-Public Use
  Company Number: US-MYLANLABS-2016M1017054

PATIENT

DRUGS (18)
  1. DURAGESIC [Suspect]
     Active Substance: FENTANYL
     Dosage: 50 ?G, QH EVERY 72 HOURS
     Route: 062
     Dates: start: 20151001, end: 20151007
  2. ATIVAN [Suspect]
     Active Substance: LORAZEPAM
     Indication: NAUSEA
     Dosage: 1 MG, Q6H PRN
     Route: 048
     Dates: start: 20150930, end: 20151007
  3. DIPRIVAN [Suspect]
     Active Substance: PROPOFOL
     Indication: DIAGNOSTIC PROCEDURE
     Dosage: 200 MG, ONCE
     Route: 042
     Dates: start: 20151005, end: 20151005
  4. ATIVAN [Suspect]
     Active Substance: LORAZEPAM
     Indication: VOMITING
  5. INVESTIGATIONAL DRUG [Suspect]
     Active Substance: INVESTIGATIONAL PRODUCT
     Dosage: 120 MG, QD
     Route: 048
     Dates: start: 20150303, end: 20150911
  6. XANAX [Suspect]
     Active Substance: ALPRAZOLAM
     Dosage: 1 MG, TID PRN
     Route: 048
     Dates: start: 20151004, end: 20151006
  7. ROXICODONE [Suspect]
     Active Substance: OXYCODONE HYDROCHLORIDE
     Indication: BREAKTHROUGH PAIN
     Dosage: 15 MG, Q4H PRN
     Route: 048
     Dates: start: 20151001, end: 20151007
  8. SUBLIMAZE [Suspect]
     Active Substance: FENTANYL CITRATE
     Indication: DIAGNOSTIC PROCEDURE
     Dosage: 50 ?G, ONCE
     Route: 042
     Dates: start: 20151005, end: 20151005
  9. PHENYLEPHRINE [Suspect]
     Active Substance: PHENYLEPHRINE\PHENYLEPHRINE HYDROCHLORIDE
     Indication: DIAGNOSTIC PROCEDURE
     Dosage: 100 ?G, ONCE
     Dates: start: 20151005, end: 20151005
  10. RIVAROXABAN [Concomitant]
     Active Substance: RIVAROXABAN
     Dosage: UNK
  11. CYCLOBENZAPRINE [Suspect]
     Active Substance: CYCLOBENZAPRINE
     Indication: MUSCLE SPASMS
     Dosage: 10 MG, TID
     Route: 048
     Dates: start: 20150930, end: 20151007
  12. DILAUDID [Suspect]
     Active Substance: HYDROMORPHONE HYDROCHLORIDE
     Indication: PAIN
     Dosage: 0.5 MG, Q 5 MINUTES PRN
     Route: 042
     Dates: start: 20151005, end: 20151005
  13. DILAUDID [Suspect]
     Active Substance: HYDROMORPHONE HYDROCHLORIDE
     Indication: PAIN
     Dosage: 1 MG, Q2H PRN
     Route: 042
     Dates: start: 20151001, end: 20151006
  14. DURAGESIC [Suspect]
     Active Substance: FENTANYL
     Dosage: 100 ?G, QH EVERY 72 HOURS
     Route: 062
     Dates: start: 20151001, end: 20151007
  15. FENTANYL. [Suspect]
     Active Substance: FENTANYL
     Indication: DIAGNOSTIC PROCEDURE
     Dosage: UNK
     Route: 042
     Dates: start: 20151005, end: 20151005
  16. INVESTIGATIONAL DRUG [Suspect]
     Active Substance: INVESTIGATIONAL PRODUCT
     Indication: COLON CANCER
     Dosage: 15 MG, BID
     Route: 048
     Dates: start: 20150303, end: 20150911
  17. SUBLIMAZE [Suspect]
     Active Substance: FENTANYL CITRATE
     Indication: PAIN
     Dosage: 50 ?G, Q3 MINUTES PRN
     Route: 042
     Dates: start: 20151005, end: 20151005
  18. VERSED [Suspect]
     Active Substance: MIDAZOLAM HYDROCHLORIDE
     Indication: DIAGNOSTIC PROCEDURE
     Dosage: 4 MG, ONCE
     Route: 042
     Dates: start: 20151005, end: 20151005

REACTIONS (1)
  - Encephalopathy [Recovered/Resolved]

NARRATIVE: CASE EVENT DATE: 20151005
